FAERS Safety Report 11947833 (Version 1)
Quarter: 2016Q1

REPORT INFORMATION
  Report Type: Spontaneous
  Country: US (occurrence: US)
  Receive Date: 20160125
  Receipt Date: 20160125
  Transmission Date: 20160526
  Serious: Yes (Hospitalization)
  Sender: FDA-Public Use
  Company Number: US-TEVA-627957USA

PATIENT
  Age: 8 Year
  Sex: Male

DRUGS (4)
  1. QUETIAPINE FUMARATE. [Interacting]
     Active Substance: QUETIAPINE FUMARATE
     Dosage: 300MG AT BEDTIME
     Route: 065
  2. CLONIDINE. [Concomitant]
     Active Substance: CLONIDINE
     Dosage: 300MG AT BEDTIME
     Route: 065
  3. OXCARBAZEPINE. [Interacting]
     Active Substance: OXCARBAZEPINE
     Route: 065
  4. QUETIAPINE FUMARATE. [Suspect]
     Active Substance: QUETIAPINE FUMARATE
     Dosage: 200MG EVERY MORNING AND 200MG AT NOON
     Route: 065

REACTIONS (3)
  - Antipsychotic drug level decreased [Recovered/Resolved]
  - Drug interaction [Recovered/Resolved]
  - Aggression [Recovered/Resolved]
